APPROVED DRUG PRODUCT: GLUTETHIMIDE
Active Ingredient: GLUTETHIMIDE
Strength: 500MG
Dosage Form/Route: TABLET;ORAL
Application: A085171 | Product #001
Applicant: UCB INC
Approved: Approved Prior to Jan 1, 1982 | RLD: No | RS: No | Type: DISCN